FAERS Safety Report 9169209 (Version 1)
Quarter: 2013Q1

REPORT INFORMATION
  Report Type: Report from Study
  Country: SG (occurrence: SG)
  Receive Date: 20130318
  Receipt Date: 20130318
  Transmission Date: 20140127
  Serious: Yes (Other)
  Sender: FDA-Public Use
  Company Number: SG-ROCHE-719187

PATIENT
  Age: 58 Year
  Sex: Female

DRUGS (1)
  1. CEFTRIAXONE SODIUM [Suspect]
     Indication: ABDOMINAL SEPSIS
     Route: 065

REACTIONS (1)
  - Acute generalised exanthematous pustulosis [Unknown]
